FAERS Safety Report 24708293 (Version 1)
Quarter: 2024Q4

REPORT INFORMATION
  Report Type: Spontaneous
  Country: US (occurrence: US)
  Receive Date: 20241207
  Receipt Date: 20241207
  Transmission Date: 20250115
  Serious: Yes (Other)
  Sender: TEVA
  Company Number: US-TEVA-VS-3270010

PATIENT
  Age: 42 Year
  Sex: Female

DRUGS (6)
  1. AJOVY [Suspect]
     Active Substance: FREMANEZUMAB-VFRM
     Indication: Migraine
     Dosage: 225/1.5MG/ML
     Route: 065
     Dates: start: 202312, end: 202401
  2. AMLODIPINE [Concomitant]
     Active Substance: AMLODIPINE BESYLATE
     Indication: Product used for unknown indication
     Dosage: ONE TABLET BY MOUTH
     Route: 048
  3. DIAZEPAM [Concomitant]
     Active Substance: DIAZEPAM
     Indication: Product used for unknown indication
  4. IBUPROFEN [Concomitant]
     Active Substance: IBUPROFEN
     Indication: Product used for unknown indication
  5. CLARITIN [Concomitant]
     Active Substance: LORATADINE
     Indication: Product used for unknown indication
  6. ZOFRAN [Concomitant]
     Active Substance: ONDANSETRON HYDROCHLORIDE
     Indication: Product used for unknown indication

REACTIONS (10)
  - Facial paralysis [Recovering/Resolving]
  - Adnexa uteri pain [Not Recovered/Not Resolved]
  - Blindness [Recovering/Resolving]
  - Burning sensation [Unknown]
  - Migraine [Unknown]
  - Injection site mass [Not Recovered/Not Resolved]
  - Ovarian cyst [Unknown]
  - Cerebrovascular accident [Unknown]
  - Visual impairment [Recovering/Resolving]
  - Immediate post-injection reaction [Unknown]

NARRATIVE: CASE EVENT DATE: 20240101
